FAERS Safety Report 5695437-7 (Version None)
Quarter: 2008Q2

REPORT INFORMATION
  Report Type: 
  Country: None (occurrence: None)
  Receive Date: 20080403
  Receipt Date: 20080226
  Transmission Date: 20081010
  Serious: Yes (Other)
  Sender: FDA-Public Use
  Company Number: CC08-215

PATIENT
  Sex: Male

DRUGS (1)
  1. PRIMATENE MIST [Suspect]
     Indication: ASTHMA
     Dosage: 2 ACTUATIONS AS NEEDED

REACTIONS (2)
  - HOT FLUSH [None]
  - NO THERAPEUTIC RESPONSE [None]
